FAERS Safety Report 12901206 (Version 3)
Quarter: 2016Q4

REPORT INFORMATION
  Report Type: Spontaneous
  Country: ES (occurrence: ES)
  Receive Date: 20161101
  Receipt Date: 20161124
  Transmission Date: 20170207
  Serious: Yes (Other)
  Sender: FDA-Public Use
  Company Number: ES-B.I. PHARMACEUTICALS,INC./RIDGEFIELD-2016-BI-066339

PATIENT
  Age: 70 Year
  Sex: Female

DRUGS (2)
  1. GILOTRIF [Suspect]
     Active Substance: AFATINIB
     Indication: EGFR GENE MUTATION
     Route: 065
     Dates: start: 20161031
  2. GILOTRIF [Suspect]
     Active Substance: AFATINIB
     Indication: LUNG ADENOCARCINOMA STAGE IV
     Route: 065
     Dates: start: 20160916, end: 20160926

REACTIONS (4)
  - Anaemia [Recovered/Resolved]
  - Diabetic retinopathy [Not Recovered/Not Resolved]
  - Renal impairment [Recovering/Resolving]
  - Ocular toxicity [Not Recovered/Not Resolved]

NARRATIVE: CASE EVENT DATE: 20160926
